FAERS Safety Report 9037205 (Version 2)
Quarter: 2012Q4

REPORT INFORMATION
  Report Type: Spontaneous
  Country: US (occurrence: None)
  Receive Date: 20121207
  Receipt Date: 20121221
  Transmission Date: 20130627
  Serious: Yes (Death)
  Sender: FDA-Public Use
  Company Number: 2012PROUSA02338

PATIENT
  Age: 72 Year
  Sex: Male
  Weight: 70.5 kg

DRUGS (8)
  1. PROVENGE (SIPULEUCEL-T) SUSPENSION [Suspect]
     Indication: PROSTATE CANCER METASTATIC
     Dosage: 250 mg, single, intravenous
     Route: 042
     Dates: start: 20120330, end: 20120303
  2. PROVENGE (SIPULEUCEL-T) SUSPENSION [Suspect]
     Indication: PROSTATE CANCER METASTATIC
     Dosage: 250 mg, single, intravenous
     Route: 042
     Dates: start: 20120413, end: 20120413
  3. PROVENGE (SIPULEUCEL-T) SUSPENSION [Suspect]
     Indication: PROSTATE CANCER METASTATIC
     Dosage: 250 ml, single, intravenous
     Route: 042
     Dates: start: 20120427, end: 20120427
  4. ASPIRIN (ACETYLSALICYLIC ACID) [Concomitant]
  5. METFORMIN (METFORMIN HYDROCHLORIDE) [Concomitant]
  6. METOPROLOL (METOPROLOL) [Concomitant]
  7. CRESTOR (ROSUVASTATIN CALCIUM) [Concomitant]
  8. COENZYME (UBIDECARENONE) [Concomitant]

REACTIONS (8)
  - Haemorrhage intracranial [None]
  - Central nervous system haemorrhage [None]
  - Fall [None]
  - Unresponsive to stimuli [None]
  - Blood pressure systolic increased [None]
  - Areflexia [None]
  - Hydrocephalus [None]
  - Brain herniation [None]
